FAERS Safety Report 11729848 (Version 1)
Quarter: 2015Q4

REPORT INFORMATION
  Report Type: Spontaneous
  Country: FR (occurrence: FR)
  Receive Date: 20151112
  Receipt Date: 20151112
  Transmission Date: 20160304
  Serious: Yes (Death)
  Sender: FDA-Public Use
  Company Number: FR-SA-2015SA178887

PATIENT
  Age: 82 Year
  Sex: Male

DRUGS (15)
  1. SERESTA [Suspect]
     Active Substance: OXAZEPAM
     Route: 048
     Dates: start: 201503, end: 20150423
  2. DISCOTRINE [Concomitant]
     Active Substance: NITROGLYCERIN
  3. DEROXAT [Suspect]
     Active Substance: PAROXETINE HYDROCHLORIDE
     Route: 048
     Dates: start: 201503, end: 20150423
  4. RISPERDAL [Suspect]
     Active Substance: RISPERIDONE
     Dosage: FREQUENCY: ON REQUEST
     Route: 048
     Dates: start: 201503, end: 20150423
  5. PREVISCAN [Concomitant]
     Active Substance: FLUINDIONE
  6. PERMIXON [Concomitant]
     Active Substance: SAW PALMETTO
  7. LEVOTHYROX [Concomitant]
     Active Substance: LEVOTHYROXINE
  8. INNOVAIR [Concomitant]
     Active Substance: BECLOMETHASONE DIPROPIONATE\FORMOTEROL
     Dosage: 100/6 ?G/DOSE INHALATION SOLUTION
     Route: 055
  9. KARDEGIC [Concomitant]
     Active Substance: ASPIRIN LYSINE
  10. JOSACINE [Suspect]
     Active Substance: JOSAMYCIN
     Indication: LUNG INFECTION
     Route: 048
     Dates: start: 20150417, end: 20150423
  11. LASILIX SPECIAL [Suspect]
     Active Substance: FUROSEMIDE
     Route: 048
     Dates: start: 201503, end: 20150425
  12. ROCEPHINE [Suspect]
     Active Substance: CEFTRIAXONE SODIUM
     Indication: LUNG INFECTION
     Route: 042
     Dates: start: 20150410, end: 20150416
  13. AMIKACIN [Suspect]
     Active Substance: AMIKACIN
     Indication: LUNG INFECTION
     Route: 042
     Dates: start: 20150410, end: 20150416
  14. STILNOX [Concomitant]
     Active Substance: ZOLPIDEM TARTRATE
  15. DAFALGAN [Concomitant]
     Active Substance: ACETAMINOPHEN

REACTIONS (2)
  - Encephalopathy [Fatal]
  - Hepatocellular injury [Fatal]

NARRATIVE: CASE EVENT DATE: 20150423
